FAERS Safety Report 20708308 (Version 1)
Quarter: 2022Q2

REPORT INFORMATION
  Report Type: Report from Study
  Country: US (occurrence: US)
  Receive Date: 20220414
  Receipt Date: 20220414
  Transmission Date: 20220720
  Serious: Yes (Other)
  Sender: FDA-Public Use
  Company Number: US-ABBVIE-21K-163-4134739-00

PATIENT
  Age: 64 Year
  Sex: Female

DRUGS (6)
  1. RINVOQ [Suspect]
     Active Substance: UPADACITINIB
     Indication: Rheumatoid arthritis
     Route: 048
     Dates: start: 202108, end: 2021
  2. RINVOQ [Suspect]
     Active Substance: UPADACITINIB
     Dosage: ER
     Route: 048
     Dates: start: 202109, end: 202201
  3. RINVOQ [Suspect]
     Active Substance: UPADACITINIB
     Route: 048
     Dates: start: 202201
  4. MODERNA COVID-19 VACCINE [Suspect]
     Active Substance: ELASOMERAN
     Indication: COVID-19 immunisation
     Dosage: 1ST DOSE
     Route: 030
     Dates: start: 20201115, end: 20201115
  5. MODERNA COVID-19 VACCINE [Suspect]
     Active Substance: ELASOMERAN
     Dosage: 2ND DOSE
     Route: 030
     Dates: start: 20210115, end: 20210115
  6. MODERNA COVID-19 VACCINE [Suspect]
     Active Substance: ELASOMERAN
     Dosage: 3RD DOSE
     Route: 030
     Dates: start: 20220101, end: 20220101

REACTIONS (7)
  - Cancer fatigue [Not Recovered/Not Resolved]
  - Abscess limb [Recovered/Resolved]
  - Neck injury [Not Recovered/Not Resolved]
  - Neck pain [Not Recovered/Not Resolved]
  - Intentional product misuse [Recovered/Resolved]
  - Joint range of motion decreased [Not Recovered/Not Resolved]
  - Rheumatoid arthritis [Unknown]

NARRATIVE: CASE EVENT DATE: 20210801
